FAERS Safety Report 7879119-9 (Version None)
Quarter: 2011Q4

REPORT INFORMATION
  Report Type: 
  Country: None (occurrence: None)
  Receive Date: 20111101
  Receipt Date: 20111019
  Transmission Date: 20120403
  Serious: Yes (Hospitalization)
  Sender: FDA-Public Use
  Company Number: DE-AMGEN-DEUNI2011052873

PATIENT
  Age: 51 Year
  Sex: Male
  Weight: 71 kg

DRUGS (8)
  1. ETANERCEPT [Suspect]
     Dosage: 50 MG, QWK
     Dates: start: 20110913
  2. CALCIVIT D [Concomitant]
     Indication: OSTEOPOROTIC FRACTURE
     Dosage: UNK
  3. PEGINTRON                          /01543001/ [Concomitant]
     Indication: HEPATITIS C
     Dosage: 180 UG, UNK
     Dates: start: 20101012
  4. RIBAVARIN [Concomitant]
     Indication: HEPATITIS C
     Dosage: 200 MG, 4X/DAY
     Dates: end: 20101001
  5. ACTONEL [Concomitant]
     Indication: OSTEOPOROTIC FRACTURE
     Dosage: 35 MG, UNK
  6. ETANERCEPT [Suspect]
     Indication: ANKYLOSING SPONDYLITIS
     Dosage: 50 MG, QWK
     Dates: start: 20100721, end: 20110306
  7. DIPIDOLOR [Concomitant]
     Indication: ANKYLOSING SPONDYLITIS
     Dosage: UNK
     Route: 058
     Dates: start: 20110301
  8. PEGASYS [Concomitant]
     Indication: HEPATITIS C
     Dosage: 180 UG, WEEKLY
     Route: 058
     Dates: start: 20101001

REACTIONS (3)
  - BONE MARROW DISORDER [None]
  - SEROMA [None]
  - IMPAIRED HEALING [None]
